APPROVED DRUG PRODUCT: POTASSIUM CHLORIDE
Active Ingredient: POTASSIUM CHLORIDE
Strength: 2MEQ/ML
Dosage Form/Route: INJECTABLE;INJECTION
Application: A087817 | Product #001
Applicant: FRESENIUS KABI USA LLC
Approved: Oct 20, 1982 | RLD: No | RS: No | Type: DISCN